FAERS Safety Report 18511475 (Version 1)
Quarter: 2020Q4

REPORT INFORMATION
  Report Type: Spontaneous
  Country: US (occurrence: US)
  Receive Date: 20201117
  Receipt Date: 20201117
  Transmission Date: 20210114
  Serious: Yes (Death)
  Sender: FDA-Public Use
  Company Number: None

PATIENT
  Age: 70 Year
  Sex: Male
  Weight: 141 kg

DRUGS (3)
  1. REMDESIVIR (EUA) (REMDESIVIR (EUA)) [Suspect]
     Active Substance: REMDESIVIR
     Indication: COVID-19
     Route: 042
     Dates: start: 20200829, end: 20200906
  2. REMDESIVIR (EUA) (REMDESIVIR (EUA)) [Suspect]
     Active Substance: REMDESIVIR
     Indication: UPPER RESPIRATORY TRACT INFECTION
     Route: 042
     Dates: start: 20200829, end: 20200906
  3. DEXAMETHASONE (DEXAMETHASONE 6MG TAB) [Suspect]
     Active Substance: DEXAMETHASONE
     Indication: UPPER RESPIRATORY TRACT INFECTION
     Route: 042
     Dates: start: 20200830, end: 20200906

REACTIONS (3)
  - Pyrexia [None]
  - Oxygen consumption increased [None]
  - Inflammatory marker increased [None]

NARRATIVE: CASE EVENT DATE: 20200907
